FAERS Safety Report 12625687 (Version 1)
Quarter: 2016Q3

REPORT INFORMATION
  Report Type: Spontaneous
  Country: US (occurrence: None)
  Receive Date: 20160804
  Receipt Date: 20160804
  Transmission Date: 20161109
  Serious: No
  Sender: FDA-Public Use
  Company Number: None

PATIENT
  Age: 42 Year
  Sex: Female

DRUGS (3)
  1. PRENISONE 10MG ROXANE LABS [Concomitant]
     Active Substance: PREDNISONE
  2. AZATHIOPRINE 50MG TABLET MYLAN PHARM INC [Suspect]
     Active Substance: AZATHIOPRINE
     Indication: SCLERODERMA
     Route: 048
     Dates: start: 201604
  3. PROAIR HFA [Concomitant]
     Active Substance: ALBUTEROL SULFATE

REACTIONS (1)
  - Hepatic function abnormal [None]

NARRATIVE: CASE EVENT DATE: 2016
